FAERS Safety Report 9364969 (Version 2)
Quarter: 2013Q3

REPORT INFORMATION
  Report Type: Spontaneous
  Country: US (occurrence: US)
  Receive Date: 20130624
  Receipt Date: 20130726
  Transmission Date: 20140515
  Serious: No
  Sender: FDA-Public Use
  Company Number: US-ROXANE LABORATORIES, INC.-2013-RO-01003RO

PATIENT
  Sex: Female

DRUGS (1)
  1. FLUTICASONE [Suspect]
     Route: 045
     Dates: start: 201204

REACTIONS (3)
  - Dizziness [Recovered/Resolved]
  - Nasal discomfort [Recovered/Resolved]
  - Malaise [Recovered/Resolved]
